FAERS Safety Report 23701684 (Version 3)
Quarter: 2024Q2

REPORT INFORMATION
  Report Type: Spontaneous
  Country: US (occurrence: US)
  Receive Date: 20240403
  Receipt Date: 20240604
  Transmission Date: 20240716
  Serious: No
  Sender: FDA-Public Use
  Company Number: US-ABBVIE-5697025

PATIENT
  Age: 68 Year
  Sex: Female
  Weight: 56 kg

DRUGS (3)
  1. CYCLOSPORINE [Suspect]
     Active Substance: CYCLOSPORINE
     Indication: Dry eye
     Route: 047
     Dates: start: 20240320
  2. CYCLOSPORINE [Suspect]
     Active Substance: CYCLOSPORINE
     Route: 047
     Dates: start: 20240323, end: 20240326
  3. LANOLIN\PARAFFIN [Concomitant]
     Active Substance: LANOLIN\PARAFFIN
     Indication: Dry eye
     Dosage: DOSE: 1 DROP, FOA: EYE DROP + USED IN BOTH EYES (OU)
     Route: 047

REACTIONS (4)
  - Ocular discomfort [Recovered/Resolved]
  - Eye pruritus [Recovered/Resolved]
  - Ocular hyperaemia [Unknown]
  - Eye pain [Unknown]

NARRATIVE: CASE EVENT DATE: 20240301
